FAERS Safety Report 6662622-7 (Version None)
Quarter: 2010Q1

REPORT INFORMATION
  Report Type: 
  Country: None (occurrence: None)
  Receive Date: 20100329
  Receipt Date: 20100315
  Transmission Date: 20100710
  Serious: Yes (Hospitalization)
  Sender: FDA-Public Use
  Company Number: 230469J10BRA

PATIENT
  Age: 26 Year
  Sex: Female

DRUGS (5)
  1. REBIF [Suspect]
     Indication: RELAPSING-REMITTING MULTIPLE SCLEROSIS
     Dosage: 22 MCG, 2 IN 1 WEEKS
     Dates: start: 20091001
  2. RABEPRAZOLE SODIUM [Concomitant]
  3. ZELMAC (TEGASEROD) [Concomitant]
  4. LEXAPRO [Concomitant]
  5. ACETAMINOPHEN [Concomitant]

REACTIONS (1)
  - FALL [None]
